FAERS Safety Report 6616882-9 (Version None)
Quarter: 2010Q1

REPORT INFORMATION
  Report Type: 
  Country: None (occurrence: None)
  Receive Date: 20100301
  Receipt Date: 20100215
  Transmission Date: 20100710
  Serious: Yes (Hospitalization)
  Sender: FDA-Public Use
  Company Number: KV200801457

PATIENT
  Age: 52 Year
  Sex: Female
  Weight: 40.8 kg

DRUGS (6)
  1. MORPHINE SULFATE [Suspect]
     Indication: ABDOMINAL PAIN
     Dosage: 60 MG, BID, ORAL
     Route: 048
     Dates: start: 20060725
  2. DICYCLOMINE 1000686011 (DICYCLOVERINE) [Concomitant]
  3. DIAZEPAM [Concomitant]
  4. DEPO-ESTRADIOL (ESTRADIOL CIPIONATE) [Concomitant]
  5. HYDROCODONE BITARTRATE AND ACETAMINOPHEN (HYDROCODONE BITARTRATE, PARA [Concomitant]
  6. MAGNESIUM CITRATE (MAGNESIUM CITRATE) [Concomitant]

REACTIONS (13)
  - ACTIVITIES OF DAILY LIVING IMPAIRED [None]
  - ALKALOSIS HYPOCHLORAEMIC [None]
  - ANAEMIA [None]
  - CONDITION AGGRAVATED [None]
  - CONSTIPATION [None]
  - DECREASED APPETITE [None]
  - DEHYDRATION [None]
  - HEADACHE [None]
  - INCORRECT DOSE ADMINISTERED [None]
  - INTESTINAL OBSTRUCTION [None]
  - LEUKOPENIA [None]
  - PRODUCT QUALITY ISSUE [None]
  - PYREXIA [None]
